FAERS Safety Report 5966553-7 (Version None)
Quarter: 2008Q4

REPORT INFORMATION
  Report Type: 
  Country: None (occurrence: None)
  Receive Date: 20081125
  Receipt Date: 20081119
  Transmission Date: 20090506
  Serious: Yes (Hospitalization)
  Sender: FDA-Public Use
  Company Number: US-ABBOTT-08P-163-0488897-00

PATIENT
  Sex: Female

DRUGS (10)
  1. ZEMPLAR [Suspect]
     Indication: HYPERPARATHYROIDISM
     Dates: start: 20080219, end: 20080914
  2. LEVOTHYROXINE SODIUM [Concomitant]
     Indication: DRUG USE FOR UNKNOWN INDICATION
  3. PRISTIQ [Concomitant]
     Indication: DRUG USE FOR UNKNOWN INDICATION
  4. METOPROLOL TARTRATE [Concomitant]
     Indication: DRUG USE FOR UNKNOWN INDICATION
  5. FUROSEMIDE [Concomitant]
     Indication: DRUG USE FOR UNKNOWN INDICATION
  6. FEXOFENADINE [Concomitant]
     Indication: DRUG USE FOR UNKNOWN INDICATION
  7. ACETYLSALICYLIC ACID SRT [Concomitant]
     Indication: DRUG USE FOR UNKNOWN INDICATION
  8. SIMVASTATIN [Concomitant]
     Indication: DRUG USE FOR UNKNOWN INDICATION
  9. LORAZEPAM [Concomitant]
     Indication: DRUG USE FOR UNKNOWN INDICATION
  10. TRAMADOL HCL [Concomitant]
     Indication: DRUG USE FOR UNKNOWN INDICATION
     Dosage: AS NEEDED

REACTIONS (1)
  - THYROID CANCER [None]
